FAERS Safety Report 20187054 (Version 2)
Quarter: 2022Q1

REPORT INFORMATION
  Report Type: Report from Study
  Country: KR (occurrence: KR)
  Receive Date: 20211215
  Receipt Date: 20220124
  Transmission Date: 20220423
  Serious: Yes (Hospitalization, Other)
  Sender: FDA-Public Use
  Company Number: KR-009507513-2109KOR001359

PATIENT
  Age: 59 Year
  Sex: Male
  Weight: 71 kg

DRUGS (16)
  1. PEMBROLIZUMAB [Suspect]
     Active Substance: PEMBROLIZUMAB
     Indication: Non-small cell lung cancer
     Dosage: 200 MG, EVERY 3 WEEKS, IV
     Route: 042
     Dates: start: 20210629, end: 20210629
  2. PEMBROLIZUMAB [Suspect]
     Active Substance: PEMBROLIZUMAB
     Dosage: 200 MG, EVERY 3 WEEKS, IV
     Route: 042
     Dates: start: 20210720, end: 20210720
  3. PEMBROLIZUMAB [Suspect]
     Active Substance: PEMBROLIZUMAB
     Dosage: 200 MG, EVERY 3 WEEKS, IV
     Route: 042
     Dates: start: 20210810, end: 20210810
  4. PEMBROLIZUMAB [Suspect]
     Active Substance: PEMBROLIZUMAB
     Dosage: 200 MG, EVERY 3 WEEKS, IV
     Route: 042
     Dates: start: 20210831, end: 20210831
  5. PEMBROLIZUMAB [Suspect]
     Active Substance: PEMBROLIZUMAB
     Dosage: 200 MG, EVERY 3 WEEKS, IV
     Route: 042
     Dates: start: 20211019
  6. PACLITAXEL [Suspect]
     Active Substance: PACLITAXEL
     Indication: Non-small cell lung cancer
     Dosage: 320.25 MG, QD, IV
     Route: 042
     Dates: start: 20210629, end: 20210629
  7. CARBOPLATIN [Suspect]
     Active Substance: CARBOPLATIN
     Indication: Non-small cell lung cancer
     Dosage: STRENGHT: 50 MG/ 5 ML, 816.66 MG QD IV
     Route: 042
     Dates: start: 20210629, end: 20210629
  8. SYNATURA [Concomitant]
     Indication: Cough
     Dosage: 15 MILLILITER, TID
     Route: 048
     Dates: start: 20210629
  9. KANITRON [Concomitant]
     Indication: Prophylaxis of nausea and vomiting
     Dosage: 1 MILLIGRAM, QD
     Route: 048
     Dates: start: 20210630
  10. MOSAPRIDE CITRATE [Concomitant]
     Active Substance: MOSAPRIDE CITRATE
     Indication: Prophylaxis
     Dosage: 5 MILLIGRAM, BID
     Route: 048
     Dates: start: 20210630
  11. OLMEC [Concomitant]
     Indication: Hypertension
     Dosage: 20 MILLIGRAM, QD
     Route: 048
     Dates: start: 20210629
  12. YUHAN DEXAMETHASONE [Concomitant]
     Indication: Prophylaxis
     Dosage: 4 MILLIGRAM, BID
     Route: 048
     Dates: start: 20210630
  13. GLUCOPHAGE XR [Concomitant]
     Active Substance: METFORMIN HYDROCHLORIDE
     Indication: Diabetes mellitus
     Dosage: 1000 MILLIGRAM, QD
     Route: 048
     Dates: start: 20210629
  14. LODIEN [Concomitant]
     Indication: Hypertension
     Dosage: 2.5 MILLIGRAM, QD
     Route: 048
     Dates: start: 20210629
  15. FEBUXOSTAT [Concomitant]
     Active Substance: FEBUXOSTAT
     Indication: Gout
     Dosage: 20 MILLIGRAM, QD
     Route: 048
     Dates: start: 20210629
  16. MUCOPECT [Concomitant]
     Indication: Cough
     Dosage: 30 MILLIGRAM, TID
     Route: 048
     Dates: start: 20210629

REACTIONS (4)
  - Vomiting [Recovered/Resolved]
  - Pyrexia [Recovered/Resolved]
  - Aspiration [Unknown]
  - Inappropriate schedule of product administration [Unknown]

NARRATIVE: CASE EVENT DATE: 20210902
